FAERS Safety Report 8844412 (Version 4)
Quarter: 2013Q1

REPORT INFORMATION
  Report Type: Spontaneous
  Country: US (occurrence: US)
  Receive Date: 20121017
  Receipt Date: 20130321
  Transmission Date: 20140127
  Serious: Yes (Other)
  Sender: FDA-Public Use
  Company Number: US-PFIZER INC-2012253060

PATIENT
  Age: 64 Year
  Sex: Female
  Weight: 84.35 kg

DRUGS (6)
  1. XALKORI [Suspect]
     Indication: NON-SMALL CELL LUNG CANCER STAGE IV
     Dosage: 500 MG, 2X/DAY
     Route: 048
     Dates: start: 20120331, end: 20121004
  2. XALKORI [Suspect]
     Dosage: 250 MG, 1X/DAY
     Route: 048
     Dates: start: 20121214
  3. XALKORI [Suspect]
     Dosage: 375 MG, 1X/DAY
     Dates: start: 201212
  4. XALKORI [Suspect]
     Dosage: 400 MG, 1X/DAY
  5. XALKORI [Suspect]
     Dosage: 500 MG, 1X/DAY
     Dates: start: 20130226
  6. HYDROCHLOROTHIAZIDE [Concomitant]
     Dosage: UNK

REACTIONS (19)
  - Haemorrhage [Unknown]
  - Second primary malignancy [Unknown]
  - Uterine cancer [Unknown]
  - Diplopia [Recovered/Resolved]
  - Oedema peripheral [Unknown]
  - Chills [Unknown]
  - Lung disorder [Unknown]
  - Pneumonitis [Recovered/Resolved]
  - Pleural effusion [Unknown]
  - Tremor [Unknown]
  - Eye swelling [Unknown]
  - Visual impairment [Unknown]
  - Vision blurred [Unknown]
  - Constipation [Unknown]
  - Malabsorption [Unknown]
  - Weight increased [Unknown]
  - Cataract [Unknown]
  - Anaemia [Unknown]
  - Blood albumin decreased [Unknown]
